FAERS Safety Report 4500104-9 (Version None)
Quarter: 2004Q4

REPORT INFORMATION
  Report Type: 
  Country: None (occurrence: None)
  Receive Date: 20041112
  Receipt Date: 20040707
  Transmission Date: 20050328
  Serious: Yes (Hospitalization)
  Sender: FDA-Public Use
  Company Number: 372685

PATIENT
  Age: 55 Year
  Sex: Male

DRUGS (5)
  1. CARVEDILOL [Suspect]
     Dosage: 2.5MG PER DAY
     Route: 048
     Dates: start: 20040215, end: 20040611
  2. AMIODARONE HCL [Concomitant]
     Indication: ILL-DEFINED DISORDER
     Route: 048
     Dates: start: 20040215
  3. ITRACONAZOLE [Concomitant]
     Indication: ILL-DEFINED DISORDER
  4. WARFARIN SODIUM [Concomitant]
     Indication: ILL-DEFINED DISORDER
  5. GASTER [Concomitant]
     Indication: ILL-DEFINED DISORDER

REACTIONS (8)
  - BLOOD PRESSURE DECREASED [None]
  - CARDIOGENIC SHOCK [None]
  - EJECTION FRACTION DECREASED [None]
  - HEART RATE DECREASED [None]
  - NAUSEA [None]
  - PYREXIA [None]
  - SEPSIS [None]
  - VOMITING [None]
